FAERS Safety Report 12991294 (Version 1)
Quarter: 2016Q4

REPORT INFORMATION
  Report Type: Spontaneous
  Country: GB (occurrence: GB)
  Receive Date: 20161201
  Receipt Date: 20161201
  Transmission Date: 20170207
  Serious: Yes (Life-Threatening, Other)
  Sender: FDA-Public Use
  Company Number: GB-NOVOPROD-520219

PATIENT
  Age: 61 Year
  Sex: Male
  Weight: 86 kg

DRUGS (4)
  1. INSULIN GLARGINE [Suspect]
     Active Substance: INSULIN GLARGINE
     Indication: BLOOD GLUCOSE INCREASED
     Dosage: VARIABLE
     Route: 065
     Dates: start: 201304, end: 201603
  2. GLICLAZIDE [Concomitant]
     Active Substance: GLICLAZIDE
  3. NOVORAPID [Suspect]
     Active Substance: INSULIN ASPART
     Indication: BLOOD GLUCOSE INCREASED
     Dosage: VARIABLE
     Route: 065
     Dates: start: 201304, end: 201603
  4. GLUCOPHAGE S [Concomitant]
     Active Substance: METFORMIN HYDROCHLORIDE

REACTIONS (4)
  - Dyspnoea exertional [Recovering/Resolving]
  - Aortic valve stenosis [Recovering/Resolving]
  - Arteriosclerosis [Recovering/Resolving]
  - Abnormal weight gain [Recovering/Resolving]

NARRATIVE: CASE EVENT DATE: 20130404
